FAERS Safety Report 19431945 (Version 4)
Quarter: 2021Q3

REPORT INFORMATION
  Report Type: Spontaneous
  Country: JP (occurrence: JP)
  Receive Date: 20210617
  Receipt Date: 20210730
  Transmission Date: 20211014
  Serious: Yes (Other)
  Sender: FDA-Public Use
  Company Number: JP-PFIZER INC-2021653705

PATIENT
  Age: 6 Decade
  Sex: Female

DRUGS (4)
  1. FULVESTRANT. [Concomitant]
     Active Substance: FULVESTRANT
     Dosage: UNK
  2. IBRANCE [Suspect]
     Active Substance: PALBOCICLIB
     Dosage: UNK
     Dates: start: 20210521, end: 20210604
  3. IBRANCE [Suspect]
     Active Substance: PALBOCICLIB
     Dosage: 75 MG, (FIRST, ADMINISTER FOR 2 WEEKS)
  4. IBRANCE [Suspect]
     Active Substance: PALBOCICLIB
     Dosage: 75 MG FOR 2 WEEKS

REACTIONS (5)
  - Blood creatinine increased [Recovering/Resolving]
  - Neutrophil count decreased [Recovering/Resolving]
  - Dehydration [Unknown]
  - Skin lesion [Unknown]
  - Diarrhoea [Unknown]

NARRATIVE: CASE EVENT DATE: 202106
